FAERS Safety Report 16718810 (Version 32)
Quarter: 2023Q2

REPORT INFORMATION
  Report Type: Spontaneous
  Country: CA (occurrence: CA)
  Receive Date: 20190820
  Receipt Date: 20230605
  Transmission Date: 20230721
  Serious: Yes (Hospitalization, Other)
  Sender: FDA-Public Use
  Company Number: CA-CELLTRION INC.-2019CA021409

PATIENT

DRUGS (30)
  1. INFLECTRA [Suspect]
     Active Substance: INFLIXIMAB-DYYB
     Indication: Crohn^s disease
     Dosage: 5 MG/KG (ROUNDED UP OR DOWN TO NEAREST VIAL), AT 0, 2, 6 WEEKS, THEN EVERY 8 WEEKS
     Route: 042
     Dates: start: 20190430
  2. INFLECTRA [Suspect]
     Active Substance: INFLIXIMAB-DYYB
     Dosage: 5 MG/KG (ROUNDED UP OR DOWN TO NEAREST VIAL), 0, 2, 6, THEN EVERY 8 WEEKS
     Route: 042
     Dates: start: 20190514
  3. INFLECTRA [Suspect]
     Active Substance: INFLIXIMAB-DYYB
     Dosage: 5 MG/KG (ROUNDED UP OR DOWN TO NEAREST VIAL), 0, 2, 6, THEN EVERY 8 WEEKS
     Route: 042
     Dates: start: 20190611
  4. INFLECTRA [Suspect]
     Active Substance: INFLIXIMAB-DYYB
     Dosage: 5 MG/KG (ROUNDED UP OR DOWN TO NEAREST VIAL), 0, 2, 6, THEN EVERY 8 WEEKS
     Route: 042
     Dates: start: 20190807
  5. INFLECTRA [Suspect]
     Active Substance: INFLIXIMAB-DYYB
     Dosage: 5 MG/KG (ROUNDED UP OR DOWN TO NEAREST VIAL), 0, 2, 6, THEN EVERY 8 WEEKS
     Route: 042
     Dates: start: 20191004
  6. INFLECTRA [Suspect]
     Active Substance: INFLIXIMAB-DYYB
     Dosage: 5 MG/KG (ROUNDED UP OR DOWN TO NEAREST VIAL), 0, 2, 6, THEN EVERY 8 WEEKS
     Route: 042
     Dates: start: 20191129
  7. INFLECTRA [Suspect]
     Active Substance: INFLIXIMAB-DYYB
     Dosage: 10 MG/KG (ROUNDED UP OR DOWN TO NEAREST VIAL), EVERY 8 WEEKS
     Route: 042
     Dates: start: 20200305
  8. INFLECTRA [Suspect]
     Active Substance: INFLIXIMAB-DYYB
     Dosage: 10 MG/KG, EVERY 8 WEEKS
     Route: 042
     Dates: start: 20200305
  9. INFLECTRA [Suspect]
     Active Substance: INFLIXIMAB-DYYB
     Dosage: 10 MG/KG (ROUNDED UP OR DOWN TO NEAREST VIAL), EVERY 8 WEEKS
     Route: 042
     Dates: start: 20200501
  10. INFLECTRA [Suspect]
     Active Substance: INFLIXIMAB-DYYB
     Dosage: 10 MG/KG (ROUNDED UP OR DOWN TO NEAREST VIAL), EVERY 8 WEEKS
     Route: 042
     Dates: start: 20200824
  11. INFLECTRA [Suspect]
     Active Substance: INFLIXIMAB-DYYB
     Dosage: 10 MG/KG (ROUNDED TO NEAREST VIAL) EVERY 6 WEEK
     Route: 042
     Dates: start: 20210130
  12. INFLECTRA [Suspect]
     Active Substance: INFLIXIMAB-DYYB
     Dosage: 900 MG
     Route: 042
     Dates: start: 20210316
  13. INFLECTRA [Suspect]
     Active Substance: INFLIXIMAB-DYYB
     Dosage: 900 MG
     Route: 042
     Dates: start: 20210430
  14. INFLECTRA [Suspect]
     Active Substance: INFLIXIMAB-DYYB
     Dosage: 900 MG
     Route: 042
     Dates: start: 20210611
  15. INFLECTRA [Suspect]
     Active Substance: INFLIXIMAB-DYYB
     Dosage: 900 MG
     Route: 042
     Dates: start: 20210723
  16. INFLECTRA [Suspect]
     Active Substance: INFLIXIMAB-DYYB
     Dosage: 900 MG
     Route: 042
     Dates: start: 20210903
  17. INFLECTRA [Suspect]
     Active Substance: INFLIXIMAB-DYYB
     Dosage: 10 MG/KG, EVERY 6 WEEKS
     Route: 042
     Dates: start: 20211015
  18. INFLECTRA [Suspect]
     Active Substance: INFLIXIMAB-DYYB
     Dosage: 10 MG/KG, EVERY 6 WEEKS
     Route: 042
     Dates: start: 20211126
  19. INFLECTRA [Suspect]
     Active Substance: INFLIXIMAB-DYYB
     Dosage: 10 MG/KG, EVERY 6 WEEKS
     Route: 042
     Dates: start: 20220107
  20. INFLECTRA [Suspect]
     Active Substance: INFLIXIMAB-DYYB
     Dosage: 10 MG/KG, EVERY 6 WEEKS
     Route: 042
     Dates: start: 20220218
  21. INFLECTRA [Suspect]
     Active Substance: INFLIXIMAB-DYYB
     Dosage: 10 MG/KG (ROUNDED TO NEAREST VIAL), EVERY 6 WEEK,
     Route: 042
     Dates: start: 20220401
  22. INFLECTRA [Suspect]
     Active Substance: INFLIXIMAB-DYYB
     Dosage: 10 MG/KG (ROUNDED TO NEAREST VIAL), EVERY 6 WEEK,
     Route: 042
     Dates: start: 20220513
  23. INFLECTRA [Suspect]
     Active Substance: INFLIXIMAB-DYYB
     Dosage: 10 MG/KG (ROUNDED TO NEAREST VIAL), EVERY 6 WEEK,
     Route: 042
     Dates: start: 20220622
  24. INFLECTRA [Suspect]
     Active Substance: INFLIXIMAB-DYYB
     Dosage: 10 MG/KG (ROUNDED TO NEAREST VIAL), EVERY 6 WEEK,
     Route: 042
     Dates: start: 20220805
  25. INFLECTRA [Suspect]
     Active Substance: INFLIXIMAB-DYYB
     Dosage: 10 MG/KG (ROUNDED TO NEAREST VIAL), EVERY 6 WEEK,
     Route: 042
     Dates: start: 20220919
  26. INFLECTRA [Suspect]
     Active Substance: INFLIXIMAB-DYYB
     Dosage: 10 MG/KG (ROUNDED TO NEAREST VIAL), EVERY 6 WEEK,
     Route: 042
     Dates: start: 20221209
  27. INFLECTRA [Suspect]
     Active Substance: INFLIXIMAB-DYYB
     Dosage: 10 MG/KG (ROUNDED TO NEAREST VIAL), EVERY 6 WEEK,
     Route: 042
     Dates: start: 20221209
  28. INFLECTRA [Suspect]
     Active Substance: INFLIXIMAB-DYYB
     Dosage: 10 MG/KG (ROUNDED TO NEAREST VIAL), EVERY 6 WEEK,
     Route: 042
     Dates: start: 20230120
  29. INFLECTRA [Suspect]
     Active Substance: INFLIXIMAB-DYYB
     Dosage: 900 MG, EVERY 6 WEEKS
     Route: 042
     Dates: start: 20230526
  30. PANTOPRAZOLE [Concomitant]
     Active Substance: PANTOPRAZOLE
     Dosage: UNK, 1X/DAY
     Route: 048

REACTIONS (30)
  - Retinal detachment [Recovering/Resolving]
  - Peritonitis [Unknown]
  - Malaise [Unknown]
  - Fall [Unknown]
  - Condition aggravated [Recovered/Resolved]
  - Therapeutic response shortened [Unknown]
  - Drug level decreased [Not Recovered/Not Resolved]
  - Blood pressure increased [Unknown]
  - Heart rate increased [Recovered/Resolved]
  - Rash [Recovering/Resolving]
  - Fatigue [Unknown]
  - Depression [Unknown]
  - Disorientation [Unknown]
  - Pain [Unknown]
  - Burning sensation [Unknown]
  - Crying [Unknown]
  - Dizziness [Recovered/Resolved]
  - Decreased appetite [Unknown]
  - Asthenia [Unknown]
  - Nausea [Unknown]
  - Weight decreased [Unknown]
  - Muscle spasms [Unknown]
  - Anal fissure [Unknown]
  - Blood magnesium decreased [Not Recovered/Not Resolved]
  - Nasal congestion [Recovering/Resolving]
  - Seasonal allergy [Recovering/Resolving]
  - Headache [Recovering/Resolving]
  - Off label use [Unknown]
  - Off label use [Unknown]
  - Intentional product use issue [Unknown]

NARRATIVE: CASE EVENT DATE: 20190101
